FAERS Safety Report 7596874-6 (Version None)
Quarter: 2011Q3

REPORT INFORMATION
  Report Type: 
  Country: None (occurrence: None)
  Receive Date: 20110708
  Receipt Date: 20110705
  Transmission Date: 20111222
  Serious: Yes (Other)
  Sender: FDA-Public Use
  Company Number: FR-PFIZER INC-2011149476

PATIENT
  Age: 81 Year
  Sex: Male

DRUGS (7)
  1. GLYBURIDE [Concomitant]
     Dosage: UNK
  2. PLAVIX [Concomitant]
     Dosage: UNK
  3. VASTAREL [Concomitant]
     Dosage: UNK
  4. ASPIRIN [Concomitant]
     Dosage: UNK
  5. SITAGLIPTIN PHOSPHATE [Concomitant]
     Indication: TYPE 2 DIABETES MELLITUS
     Dosage: 100 MG, 1X/DAY
     Dates: start: 20100301
  6. RAMIPRIL [Concomitant]
     Dosage: UNK
  7. ATORVASTATIN CALCIUM [Suspect]
     Dosage: UNK
     Dates: start: 20090301

REACTIONS (1)
  - GAMMA-GLUTAMYLTRANSFERASE INCREASED [None]
